FAERS Safety Report 7779956-5 (Version None)
Quarter: 2011Q3

REPORT INFORMATION
  Report Type: 
  Country: None (occurrence: None)
  Receive Date: 20110927
  Receipt Date: 20110918
  Transmission Date: 20111222
  Serious: Yes (Hospitalization)
  Sender: FDA-Public Use
  Company Number: IL-JNJFOC-20110907698

PATIENT
  Age: 65 Year
  Sex: Female

DRUGS (4)
  1. PALIPERIDONE [Suspect]
     Indication: SCHIZOPHRENIA
     Route: 030
     Dates: start: 20110906
  2. OMEPRADEX [Concomitant]
     Route: 065
  3. PROLOL [Concomitant]
     Route: 065
  4. COSOPT [Concomitant]
     Indication: GLAUCOMA
     Route: 065

REACTIONS (3)
  - MYOCARDIAL INFARCTION [None]
  - STUPOR [None]
  - URINARY TRACT INFECTION [None]
